FAERS Safety Report 8064772-X (Version None)
Quarter: 2012Q1

REPORT INFORMATION
  Report Type: 
  Country: None (occurrence: None)
  Receive Date: 20120124
  Receipt Date: 20120117
  Transmission Date: 20120608
  Serious: Yes (Congenital Anomaly, Other)
  Sender: FDA-Public Use
  Company Number: KR-BRISTOL-MYERS SQUIBB COMPANY-16359192

PATIENT
  Sex: Male

DRUGS (1)
  1. BARACLUDE [Suspect]
     Route: 064

REACTIONS (1)
  - ANENCEPHALY [None]
